FAERS Safety Report 14558345 (Version 1)
Quarter: 2018Q1

REPORT INFORMATION
  Report Type: Spontaneous
  Country: FR (occurrence: FR)
  Receive Date: 20180221
  Receipt Date: 20180221
  Transmission Date: 20180509
  Serious: Yes (Other)
  Sender: FDA-Public Use
  Company Number: FR-PFIZER INC-2018071343

PATIENT
  Age: 76 Year
  Sex: Female
  Weight: 78.5 kg

DRUGS (5)
  1. IBRANCE [Suspect]
     Active Substance: PALBOCICLIB
     Indication: BREAST CANCER METASTATIC
     Dosage: UNK
     Route: 048
     Dates: start: 20170322, end: 20171129
  2. XGEVA [Suspect]
     Active Substance: DENOSUMAB
     Indication: BREAST CANCER METASTATIC
     Dosage: UNK
     Dates: end: 20171129
  3. CACIT D3 [Concomitant]
     Active Substance: CALCIUM\CHOLECALCIFEROL
     Dosage: UNK
     Dates: start: 201506, end: 201711
  4. FASLODEX [Concomitant]
     Active Substance: FULVESTRANT
     Dosage: UNK
     Dates: start: 20170322
  5. EUPANTOL [Concomitant]
     Active Substance: PANTOPRAZOLE SODIUM
     Dosage: UNK
     Dates: start: 201506

REACTIONS (15)
  - Osteonecrosis of jaw [Unknown]
  - Haemoglobin decreased [Unknown]
  - Neutrophil count decreased [Unknown]
  - Weight decreased [Unknown]
  - Decreased appetite [Unknown]
  - Asthenia [Unknown]
  - Abscess [Unknown]
  - Dermatitis [Unknown]
  - Skin ulcer [Unknown]
  - Gingival ulceration [Unknown]
  - Gingival pain [Unknown]
  - Dysgeusia [Unknown]
  - Carbohydrate antigen 15-3 increased [Unknown]
  - Superinfection [Unknown]
  - Impaired healing [Unknown]

NARRATIVE: CASE EVENT DATE: 20170531
